FAERS Safety Report 24591698 (Version 2)
Quarter: 2024Q4

REPORT INFORMATION
  Report Type: Report from Study
  Country: US (occurrence: US)
  Receive Date: 20241108
  Receipt Date: 20241126
  Transmission Date: 20250114
  Serious: No
  Sender: SANOFI AVENTIS
  Company Number: US-SA-2024SA316633

PATIENT
  Age: 71 Year
  Sex: Male
  Weight: 102.49 kg

DRUGS (10)
  1. CABAZITAXEL [Suspect]
     Active Substance: CABAZITAXEL
     Indication: Prostate cancer
     Dosage: 15 MG/M2, Q3W
     Route: 042
     Dates: start: 20240923, end: 20240923
  2. CABAZITAXEL [Suspect]
     Active Substance: CABAZITAXEL
     Dosage: 20 MG/M2 ((TOTAL ADMINISTERED DOSE WAS 45 MG)
     Route: 042
     Dates: start: 20241014, end: 20241014
  3. CARBOPLATIN [Suspect]
     Active Substance: CARBOPLATIN
     Indication: Prostate cancer
     Dosage: 450 MG, Q3W
     Route: 042
     Dates: start: 20240923, end: 20240923
  4. CARBOPLATIN [Suspect]
     Active Substance: CARBOPLATIN
     Dosage: 4 MG/ML, Q3W, AUC 3 MG/ML/MIN, EVERY 3 WEEKS (TOTAL ADMINISTERED DOSE: 600 MG)
     Route: 042
     Dates: start: 20241014, end: 20241014
  5. AMLODIPINE [Concomitant]
     Active Substance: AMLODIPINE BESYLATE
     Indication: Hypertension
     Dosage: UNK
     Dates: start: 20221025
  6. GABAPENTIN [Concomitant]
     Active Substance: GABAPENTIN
     Indication: Osteoarthritis
     Dosage: UNK
     Dates: start: 20221108
  7. LORAZEPAM [Concomitant]
     Active Substance: LORAZEPAM
     Indication: Anxiety
     Dosage: UNK
     Dates: start: 20230222
  8. OMEPRAZOLE [Concomitant]
     Active Substance: OMEPRAZOLE
     Indication: Dyspepsia
     Dosage: UNK
     Dates: start: 20230118
  9. ONDANSETRON [Concomitant]
     Active Substance: ONDANSETRON
     Indication: Prophylaxis of nausea and vomiting
     Dosage: UNK
     Dates: start: 20230118
  10. ELIGARD [Concomitant]
     Active Substance: LEUPROLIDE ACETATE
     Dosage: UNK
     Dates: start: 20211020

REACTIONS (2)
  - Syncope [Recovered/Resolved]
  - Atrial fibrillation [Recovered/Resolved]

NARRATIVE: CASE EVENT DATE: 20241018
